FAERS Safety Report 19153278 (Version 1)
Quarter: 2021Q2

REPORT INFORMATION
  Report Type: Spontaneous
  Country: US (occurrence: US)
  Receive Date: 20210418
  Receipt Date: 20210418
  Transmission Date: 20210717
  Serious: Yes (Hospitalization, Disabling, Other)
  Sender: FDA-Public Use
  Company Number: None

PATIENT
  Age: 80 Year
  Sex: Female

DRUGS (3)
  1. FUROSEMIDE. [Concomitant]
     Active Substance: FUROSEMIDE
  2. COREG [Concomitant]
     Active Substance: CARVEDILOL
  3. PHENYTOIN SODIUM EXTENDED, GENERIC FOR PHENYTEK [Suspect]
     Active Substance: PHENYTOIN SODIUM, EXTENDED
     Indication: SEIZURE
     Dosage: ?          QUANTITY:90 CAPSULE(S);?
     Route: 048
     Dates: start: 20210118, end: 20210405

REACTIONS (2)
  - Anxiety [None]
  - Delusion [None]

NARRATIVE: CASE EVENT DATE: 20210405
